FAERS Safety Report 16374656 (Version 1)
Quarter: 2019Q2

REPORT INFORMATION
  Report Type: Spontaneous
  Country: None (occurrence: US)
  Receive Date: 20190530
  Receipt Date: 20190530
  Transmission Date: 20190711
  Serious: No
  Sender: FDA-Public Use
  Company Number: US-TEIKOKU PHARMA USA-TPU2019-00437

PATIENT
  Sex: Female
  Weight: 65.83 kg

DRUGS (6)
  1. LOSARTAN POTASSIUM. [Concomitant]
     Active Substance: LOSARTAN POTASSIUM
     Indication: BLOOD PRESSURE MEASUREMENT
  2. ADVIL [Concomitant]
     Active Substance: IBUPROFEN
     Indication: PAIN
     Dosage: 200 MG, 2 WITH A LOT OF PAIN
  3. TRAMADOL HCL [Concomitant]
     Active Substance: TRAMADOL HYDROCHLORIDE
     Indication: PAIN
     Dosage: 1 OR 2 FOR EMERGENCY
     Dates: end: 201805
  4. TYLENOL [Concomitant]
     Active Substance: ACETAMINOPHEN
     Indication: PAIN
     Dosage: 1 OR 2 IF IN A LOT OF PAIN
  5. ALEVE [Concomitant]
     Active Substance: NAPROXEN SODIUM
     Indication: PAIN
     Dosage: USUALLY 1, TAKE 2 IF IN A LOT OF PAIN
  6. LIDOCAINE PATCH [Suspect]
     Active Substance: LIDOCAINE
     Indication: BACK PAIN
     Dosage: APPLY LOWER BACK SOMETIMES AND MOSTLY UPPER BACK
     Route: 061
     Dates: start: 2016

REACTIONS (2)
  - Drug ineffective for unapproved indication [Unknown]
  - Prescription drug used without a prescription [Unknown]
